FAERS Safety Report 18725800 (Version 1)
Quarter: 2021Q1

REPORT INFORMATION
  Report Type: Spontaneous
  Country: KR (occurrence: KR)
  Receive Date: 20210111
  Receipt Date: 20210111
  Transmission Date: 20210419
  Serious: Yes (Death, Other)
  Sender: FDA-Public Use
  Company Number: KR-GILEAD-2021-0511915

PATIENT
  Sex: Female
  Weight: 45 kg

DRUGS (29)
  1. RINOEBASTEL [Concomitant]
  2. PARAMACET [Concomitant]
     Active Substance: ACETAMINOPHEN\TRAMADOL
  3. CRAVIT [Concomitant]
     Active Substance: LEVOFLOXACIN
  4. MACPERAN [Concomitant]
     Active Substance: METOCLOPRAMIDE HYDROCHLORIDE
  5. GASTER [CROMOGLICATE SODIUM] [Concomitant]
  6. ELIQUIS [Concomitant]
     Active Substance: APIXABAN
  7. ARICEPT [Concomitant]
     Active Substance: DONEPEZIL HYDROCHLORIDE
  8. NORMAL SALINE [Concomitant]
     Active Substance: SODIUM CHLORIDE
  9. VASELINE [PARAFFIN] [Concomitant]
     Active Substance: PARAFFIN
  10. CODAEWON [Concomitant]
  11. TYLENOL [Concomitant]
     Active Substance: ACETAMINOPHEN
  12. KALETRA [Concomitant]
     Active Substance: LOPINAVIR\RITONAVIR
  13. HINECHOL [Concomitant]
  14. ATROPINE. [Concomitant]
     Active Substance: ATROPINE
  15. EPINEPHRINE. [Concomitant]
     Active Substance: EPINEPHRINE
  16. VEKLURY [Suspect]
     Active Substance: REMDESIVIR
     Indication: COVID-19 PNEUMONIA
     Dosage: 100 MG, QD
     Route: 042
     Dates: start: 20201230, end: 20210102
  17. DEXAMETHASONE. [Concomitant]
     Active Substance: DEXAMETHASONE
  18. GLUCOPHAGE [Concomitant]
     Active Substance: METFORMIN HYDROCHLORIDE
  19. INVANZ [Concomitant]
     Active Substance: ERTAPENEM SODIUM
  20. SMOFKABIVEN [Concomitant]
     Active Substance: AMINO ACIDS\DEXTROSE\ELECTROLYTES NOS\SOYBEAN OIL
  21. COOL PAP JEIL [Concomitant]
  22. BEARSE [Concomitant]
     Active Substance: DIMETHICONE\PANCRELIPASE\URSODIOL
  23. BISACODYL. [Concomitant]
     Active Substance: BISACODYL
  24. NEO MEDICOUGH [Concomitant]
  25. NORVASC [Concomitant]
     Active Substance: AMLODIPINE BESYLATE
  26. PLAKON [Concomitant]
  27. BIOFLOR [Concomitant]
  28. TRIDOL [Concomitant]
     Active Substance: TRAMADOL HYDROCHLORIDE
  29. DICAMAX [Concomitant]

REACTIONS (1)
  - Pneumonia [Fatal]

NARRATIVE: CASE EVENT DATE: 20201231
